FAERS Safety Report 8262112-4 (Version None)
Quarter: 2012Q2

REPORT INFORMATION
  Report Type: 
  Country: None (occurrence: None)
  Receive Date: 20120405
  Receipt Date: 20120330
  Transmission Date: 20120825
  Serious: Yes (Other)
  Sender: FDA-Public Use
  Company Number: PHHY2011CA53825

PATIENT
  Sex: Male

DRUGS (1)
  1. CLOZARIL [Suspect]
     Indication: SCHIZOPHRENIA
     Dates: start: 20011127

REACTIONS (3)
  - PROTEIN TOTAL INCREASED [None]
  - DIABETES MELLITUS [None]
  - ANTIPSYCHOTIC DRUG LEVEL INCREASED [None]
